FAERS Safety Report 4379718-5 (Version None)
Quarter: 2004Q2

REPORT INFORMATION
  Report Type: 
  Country: None (occurrence: None)
  Receive Date: 20040617
  Receipt Date: 20040616
  Transmission Date: 20050107
  Serious: Yes (Hospitalization)
  Sender: FDA-Public Use
  Company Number: GBPFL-S-20040013

PATIENT
  Sex: Female

DRUGS (1)
  1. NAVELBINE [Suspect]
     Dosage: 25MGM2 WEEKLY
     Route: 042
     Dates: start: 20040521, end: 20040521

REACTIONS (1)
  - PAIN IN EXTREMITY [None]
